FAERS Safety Report 19184092 (Version 2)
Quarter: 2021Q4

REPORT INFORMATION
  Report Type: Report from Study
  Country: US (occurrence: US)
  Receive Date: 20210427
  Receipt Date: 20211121
  Transmission Date: 20220303
  Serious: Yes (Hospitalization, Other)
  Sender: FDA-Public Use
  Company Number: US-NOVARTISPH-NVSC2021US090009

PATIENT
  Age: 55 Year
  Sex: Male

DRUGS (1)
  1. PROMACTA [Suspect]
     Active Substance: ELTROMBOPAG OLAMINE
     Indication: Platelet count decreased
     Dosage: UNK
     Route: 065
     Dates: start: 202012

REACTIONS (3)
  - Craniocerebral injury [Unknown]
  - Fall [Unknown]
  - Brain injury [Unknown]

NARRATIVE: CASE EVENT DATE: 20210226
